FAERS Safety Report 7473209-0 (Version None)
Quarter: 2011Q2

REPORT INFORMATION
  Report Type: 
  Country: None (occurrence: None)
  Receive Date: 20110511
  Receipt Date: 20110507
  Transmission Date: 20111010
  Serious: Yes (Life-Threatening, Hospitalization, Other)
  Sender: FDA-Public Use
  Company Number: A0926812A

PATIENT
  Age: 24 Year
  Sex: Female

DRUGS (3)
  1. ZYBAN [Suspect]
     Route: 048
     Dates: end: 20110506
  2. SCOPOLAMINE [Concomitant]
  3. RANITIDINE [Concomitant]

REACTIONS (6)
  - OVERDOSE [None]
  - SUICIDE ATTEMPT [None]
  - CARDIO-RESPIRATORY ARREST [None]
  - OLIGURIA [None]
  - CONVULSION [None]
  - LOSS OF CONSCIOUSNESS [None]
